FAERS Safety Report 19940354 (Version 1)
Quarter: 2021Q4

REPORT INFORMATION
  Report Type: Spontaneous
  Country: US (occurrence: US)
  Receive Date: 20211012
  Receipt Date: 20211012
  Transmission Date: 20220303
  Serious: Yes (Other)
  Sender: FDA-Public Use
  Company Number: US-SA-SAC20211008000383

PATIENT
  Age: 62 Year
  Sex: Male

DRUGS (1)
  1. ZANTAC [Suspect]
     Active Substance: RANITIDINE HYDROCHLORIDE
     Indication: Dyspepsia
     Dosage: UNK, QD
     Dates: start: 198601, end: 202001

REACTIONS (4)
  - Lung carcinoma cell type unspecified stage IV [Unknown]
  - Pancreatic carcinoma [Unknown]
  - Gastric cancer stage IV [Unknown]
  - Brain neoplasm malignant [Unknown]

NARRATIVE: CASE EVENT DATE: 20161101
